FAERS Safety Report 25530002 (Version 1)
Quarter: 2025Q3

REPORT INFORMATION
  Report Type: Spontaneous
  Country: GB (occurrence: GB)
  Receive Date: 20250708
  Receipt Date: 20250708
  Transmission Date: 20251021
  Serious: Yes (Other)
  Sender: MYLAN
  Company Number: GB-MHRA-TPP23360421C10179879YC1751384412795

PATIENT
  Age: 74 Year
  Sex: Female
  Weight: 79 kg

DRUGS (56)
  1. GABAPENTIN [Suspect]
     Active Substance: GABAPENTIN
     Indication: Ill-defined disorder
     Dosage: 100 MILLIGRAM, Q8H
     Dates: start: 20250618
  2. GABAPENTIN [Suspect]
     Active Substance: GABAPENTIN
     Dosage: 100 MILLIGRAM, Q8H
     Route: 048
     Dates: start: 20250618
  3. GABAPENTIN [Suspect]
     Active Substance: GABAPENTIN
     Dosage: 100 MILLIGRAM, Q8H
     Route: 048
     Dates: start: 20250618
  4. GABAPENTIN [Suspect]
     Active Substance: GABAPENTIN
     Dosage: 100 MILLIGRAM, Q8H
     Dates: start: 20250618
  5. FLUTICASONE FUROATE [Concomitant]
     Active Substance: FLUTICASONE FUROATE
     Indication: Ill-defined disorder
     Dosage: UNK, QD (TWO SQUIRTS INTO EACH NOSTRIL ONCE A DAY, WHEN ..)
     Dates: start: 20250429, end: 20250529
  6. FLUTICASONE FUROATE [Concomitant]
     Active Substance: FLUTICASONE FUROATE
     Dosage: UNK, QD (TWO SQUIRTS INTO EACH NOSTRIL ONCE A DAY, WHEN ..)
     Route: 045
     Dates: start: 20250429, end: 20250529
  7. FLUTICASONE FUROATE [Concomitant]
     Active Substance: FLUTICASONE FUROATE
     Dosage: UNK, QD (TWO SQUIRTS INTO EACH NOSTRIL ONCE A DAY, WHEN ..)
     Route: 045
     Dates: start: 20250429, end: 20250529
  8. FLUTICASONE FUROATE [Concomitant]
     Active Substance: FLUTICASONE FUROATE
     Dosage: UNK, QD (TWO SQUIRTS INTO EACH NOSTRIL ONCE A DAY, WHEN ..)
     Dates: start: 20250429, end: 20250529
  9. FEXOFENADINE [Concomitant]
     Active Substance: FEXOFENADINE HYDROCHLORIDE
     Indication: Pruritus
     Dates: start: 20250501, end: 20250630
  10. FEXOFENADINE [Concomitant]
     Active Substance: FEXOFENADINE HYDROCHLORIDE
     Route: 065
     Dates: start: 20250501, end: 20250630
  11. FEXOFENADINE [Concomitant]
     Active Substance: FEXOFENADINE HYDROCHLORIDE
     Route: 065
     Dates: start: 20250501, end: 20250630
  12. FEXOFENADINE [Concomitant]
     Active Substance: FEXOFENADINE HYDROCHLORIDE
     Dates: start: 20250501, end: 20250630
  13. COCODAMOL [Concomitant]
     Active Substance: ACETAMINOPHEN\CODEINE PHOSPHATE
     Indication: Ill-defined disorder
  14. COCODAMOL [Concomitant]
     Active Substance: ACETAMINOPHEN\CODEINE PHOSPHATE
     Route: 065
  15. COCODAMOL [Concomitant]
     Active Substance: ACETAMINOPHEN\CODEINE PHOSPHATE
     Route: 065
  16. COCODAMOL [Concomitant]
     Active Substance: ACETAMINOPHEN\CODEINE PHOSPHATE
  17. BETAMETHASONE DIPROPIONATE [Concomitant]
     Active Substance: BETAMETHASONE DIPROPIONATE
     Indication: Ill-defined disorder
     Dosage: UNK, QD (APPLY 1-2 TIMES/DAY)
     Dates: start: 20250218
  18. BETAMETHASONE DIPROPIONATE [Concomitant]
     Active Substance: BETAMETHASONE DIPROPIONATE
     Dosage: UNK, QD (APPLY 1-2 TIMES/DAY)
     Route: 065
     Dates: start: 20250218
  19. BETAMETHASONE DIPROPIONATE [Concomitant]
     Active Substance: BETAMETHASONE DIPROPIONATE
     Dosage: UNK, QD (APPLY 1-2 TIMES/DAY)
     Route: 065
     Dates: start: 20250218
  20. BETAMETHASONE DIPROPIONATE [Concomitant]
     Active Substance: BETAMETHASONE DIPROPIONATE
     Dosage: UNK, QD (APPLY 1-2 TIMES/DAY)
     Dates: start: 20250218
  21. COAL TAR\COCONUT OIL\SALICYLIC ACID [Concomitant]
     Active Substance: COAL TAR\COCONUT OIL\SALICYLIC ACID
     Indication: Ill-defined disorder
     Dosage: UNK, 3XW (USE 3 TIMES/ WEEK)
     Dates: start: 20250218
  22. COAL TAR\COCONUT OIL\SALICYLIC ACID [Concomitant]
     Active Substance: COAL TAR\COCONUT OIL\SALICYLIC ACID
     Dosage: UNK, 3XW (USE 3 TIMES/ WEEK)
     Route: 065
     Dates: start: 20250218
  23. COAL TAR\COCONUT OIL\SALICYLIC ACID [Concomitant]
     Active Substance: COAL TAR\COCONUT OIL\SALICYLIC ACID
     Dosage: UNK, 3XW (USE 3 TIMES/ WEEK)
     Route: 065
     Dates: start: 20250218
  24. COAL TAR\COCONUT OIL\SALICYLIC ACID [Concomitant]
     Active Substance: COAL TAR\COCONUT OIL\SALICYLIC ACID
     Dosage: UNK, 3XW (USE 3 TIMES/ WEEK)
     Dates: start: 20250218
  25. Cetraben [Concomitant]
     Indication: Ill-defined disorder
  26. Cetraben [Concomitant]
     Route: 065
  27. Cetraben [Concomitant]
     Route: 065
  28. Cetraben [Concomitant]
  29. EMPAGLIFLOZIN [Concomitant]
     Active Substance: EMPAGLIFLOZIN
     Indication: Ill-defined disorder
     Dosage: 1 DOSAGE FORM, QD (TAKE ONE DAILY)
     Dates: start: 20250218
  30. EMPAGLIFLOZIN [Concomitant]
     Active Substance: EMPAGLIFLOZIN
     Dosage: 1 DOSAGE FORM, QD (TAKE ONE DAILY)
     Route: 065
     Dates: start: 20250218
  31. EMPAGLIFLOZIN [Concomitant]
     Active Substance: EMPAGLIFLOZIN
     Dosage: 1 DOSAGE FORM, QD (TAKE ONE DAILY)
     Route: 065
     Dates: start: 20250218
  32. EMPAGLIFLOZIN [Concomitant]
     Active Substance: EMPAGLIFLOZIN
     Dosage: 1 DOSAGE FORM, QD (TAKE ONE DAILY)
     Dates: start: 20250218
  33. ERYTHROMYCIN [Concomitant]
     Active Substance: ERYTHROMYCIN
     Indication: Ill-defined disorder
     Dosage: UNK, BID (APPLY TWICE DAILY BY DERMATOLOGY)
     Dates: start: 20250218
  34. ERYTHROMYCIN [Concomitant]
     Active Substance: ERYTHROMYCIN
     Dosage: UNK, BID (APPLY TWICE DAILY BY DERMATOLOGY)
     Route: 065
     Dates: start: 20250218
  35. ERYTHROMYCIN [Concomitant]
     Active Substance: ERYTHROMYCIN
     Dosage: UNK, BID (APPLY TWICE DAILY BY DERMATOLOGY)
     Route: 065
     Dates: start: 20250218
  36. ERYTHROMYCIN [Concomitant]
     Active Substance: ERYTHROMYCIN
     Dosage: UNK, BID (APPLY TWICE DAILY BY DERMATOLOGY)
     Dates: start: 20250218
  37. LANSOPRAZOLE [Concomitant]
     Active Substance: LANSOPRAZOLE
     Indication: Ill-defined disorder
     Dosage: 1 DOSAGE FORM, QD (TAKE ONE ONCE DAILY)
     Dates: start: 20250218
  38. LANSOPRAZOLE [Concomitant]
     Active Substance: LANSOPRAZOLE
     Dosage: 1 DOSAGE FORM, QD (TAKE ONE ONCE DAILY)
     Route: 065
     Dates: start: 20250218
  39. LANSOPRAZOLE [Concomitant]
     Active Substance: LANSOPRAZOLE
     Dosage: 1 DOSAGE FORM, QD (TAKE ONE ONCE DAILY)
     Route: 065
     Dates: start: 20250218
  40. LANSOPRAZOLE [Concomitant]
     Active Substance: LANSOPRAZOLE
     Dosage: 1 DOSAGE FORM, QD (TAKE ONE ONCE DAILY)
     Dates: start: 20250218
  41. LOSARTAN [Concomitant]
     Active Substance: LOSARTAN
     Indication: Ill-defined disorder
     Dosage: 1 DOSAGE FORM, QD (TAKE ONE DAILY. TOTAL DOSE AT 75MG.)
     Dates: start: 20250218
  42. LOSARTAN [Concomitant]
     Active Substance: LOSARTAN
     Dosage: 1 DOSAGE FORM, QD (TAKE ONE DAILY. TOTAL DOSE AT 75MG.)
     Route: 065
     Dates: start: 20250218
  43. LOSARTAN [Concomitant]
     Active Substance: LOSARTAN
     Dosage: 1 DOSAGE FORM, QD (TAKE ONE DAILY. TOTAL DOSE AT 75MG.)
     Route: 065
     Dates: start: 20250218
  44. LOSARTAN [Concomitant]
     Active Substance: LOSARTAN
     Dosage: 1 DOSAGE FORM, QD (TAKE ONE DAILY. TOTAL DOSE AT 75MG.)
     Dates: start: 20250218
  45. LYMECYCLINE [Concomitant]
     Active Substance: LYMECYCLINE
     Indication: Ill-defined disorder
     Dosage: 1 DOSAGE FORM, QOD (TAKE ONE EVERY OTHER DAY)
     Dates: start: 20250218
  46. LYMECYCLINE [Concomitant]
     Active Substance: LYMECYCLINE
     Dosage: 1 DOSAGE FORM, QOD (TAKE ONE EVERY OTHER DAY)
     Route: 065
     Dates: start: 20250218
  47. LYMECYCLINE [Concomitant]
     Active Substance: LYMECYCLINE
     Dosage: 1 DOSAGE FORM, QOD (TAKE ONE EVERY OTHER DAY)
     Route: 065
     Dates: start: 20250218
  48. LYMECYCLINE [Concomitant]
     Active Substance: LYMECYCLINE
     Dosage: 1 DOSAGE FORM, QOD (TAKE ONE EVERY OTHER DAY)
     Dates: start: 20250218
  49. METFORMIN [Concomitant]
     Active Substance: METFORMIN HYDROCHLORIDE
     Indication: Ill-defined disorder
     Dosage: 2 DOSAGE FORM, BID (TAKE TWO AFTER BREAKFAST, AND TWO AFTER EVENING..)
     Dates: start: 20250218
  50. METFORMIN [Concomitant]
     Active Substance: METFORMIN HYDROCHLORIDE
     Dosage: 2 DOSAGE FORM, BID (TAKE TWO AFTER BREAKFAST, AND TWO AFTER EVENING..)
     Route: 065
     Dates: start: 20250218
  51. METFORMIN [Concomitant]
     Active Substance: METFORMIN HYDROCHLORIDE
     Dosage: 2 DOSAGE FORM, BID (TAKE TWO AFTER BREAKFAST, AND TWO AFTER EVENING..)
     Route: 065
     Dates: start: 20250218
  52. METFORMIN [Concomitant]
     Active Substance: METFORMIN HYDROCHLORIDE
     Dosage: 2 DOSAGE FORM, BID (TAKE TWO AFTER BREAKFAST, AND TWO AFTER EVENING..)
     Dates: start: 20250218
  53. ROSUVASTATIN [Concomitant]
     Active Substance: ROSUVASTATIN
     Indication: Ill-defined disorder
     Dosage: 1 DOSAGE FORM, QD (TAKE ONE DAILY)
     Dates: start: 20250218
  54. ROSUVASTATIN [Concomitant]
     Active Substance: ROSUVASTATIN
     Dosage: 1 DOSAGE FORM, QD (TAKE ONE DAILY)
     Route: 065
     Dates: start: 20250218
  55. ROSUVASTATIN [Concomitant]
     Active Substance: ROSUVASTATIN
     Dosage: 1 DOSAGE FORM, QD (TAKE ONE DAILY)
     Route: 065
     Dates: start: 20250218
  56. ROSUVASTATIN [Concomitant]
     Active Substance: ROSUVASTATIN
     Dosage: 1 DOSAGE FORM, QD (TAKE ONE DAILY)
     Dates: start: 20250218

REACTIONS (2)
  - Joint swelling [Recovering/Resolving]
  - Arthralgia [Recovering/Resolving]

NARRATIVE: CASE EVENT DATE: 20250701
